FAERS Safety Report 5133606-5 (Version None)
Quarter: 2006Q4

REPORT INFORMATION
  Report Type: 
  Country: None (occurrence: None)
  Receive Date: 20061024
  Receipt Date: 20060417
  Transmission Date: 20070319
  Serious: No
  Sender: FDA-Public Use
  Company Number: US-AMGEN-US176453

PATIENT
  Sex: Male

DRUGS (1)
  1. SENSIPAR [Suspect]
     Indication: HYPERPARATHYROIDISM SECONDARY
     Route: 065
     Dates: start: 20040823

REACTIONS (3)
  - BLOOD PHOSPHORUS INCREASED [None]
  - NIGHT BLINDNESS [None]
  - THERAPEUTIC RESPONSE DECREASED [None]
